FAERS Safety Report 21553535 (Version 1)
Quarter: 2022Q4

REPORT INFORMATION
  Report Type: Report from Study
  Country: BR (occurrence: BR)
  Receive Date: 20221104
  Receipt Date: 20221104
  Transmission Date: 20230112
  Serious: Yes (Other)
  Sender: FDA-Public Use
  Company Number: BR-JNJFOC-20221056476

PATIENT
  Sex: Female
  Weight: 83 kg

DRUGS (1)
  1. INFLIXIMAB [Suspect]
     Active Substance: INFLIXIMAB
     Indication: Rheumatoid arthritis
     Route: 041
     Dates: start: 20210831

REACTIONS (5)
  - Thyroid cancer [Unknown]
  - Tremor [Unknown]
  - Chills [Unknown]
  - Infusion related reaction [Unknown]
  - Hypertension [Unknown]
